FAERS Safety Report 16613945 (Version 2)
Quarter: 2019Q3

REPORT INFORMATION
  Report Type: Report from Study
  Country: None (occurrence: US)
  Receive Date: 20190723
  Receipt Date: 20190820
  Transmission Date: 20191004
  Serious: Yes (Hospitalization)
  Sender: FDA-Public Use
  Company Number: US-ABBVIE-19K-163-2857806-00

PATIENT
  Sex: Male

DRUGS (1)
  1. HUMIRA [Suspect]
     Active Substance: ADALIMUMAB
     Indication: HIDRADENITIS
     Route: 058

REACTIONS (9)
  - Mobility decreased [Unknown]
  - Loss of consciousness [Unknown]
  - Self esteem decreased [Unknown]
  - Depression [Unknown]
  - Weight decreased [Unknown]
  - Polyarthritis [Unknown]
  - Pain [Unknown]
  - Pruritus [Unknown]
  - Hidradenitis [Unknown]
